FAERS Safety Report 20840434 (Version 1)
Quarter: 2022Q2

REPORT INFORMATION
  Report Type: Spontaneous
  Country: US (occurrence: US)
  Receive Date: 20220517
  Receipt Date: 20220517
  Transmission Date: 20220721
  Serious: No
  Sender: FDA-Public Use
  Company Number: US-PFIZER INC-202200464184

PATIENT
  Age: 38 Year
  Sex: Female

DRUGS (1)
  1. XELJANZ [Suspect]
     Active Substance: TOFACITINIB CITRATE
     Dosage: 5 MG, 2X/DAY (TAKE 5 MG BY MOUTH IN THE MORNING AND 5 MG BY MOUTH IN THE EVENING)
     Route: 048

REACTIONS (4)
  - Skin reaction [Not Recovered/Not Resolved]
  - Skin discolouration [Unknown]
  - Rash macular [Unknown]
  - Scab [Unknown]
